FAERS Safety Report 6382694-7 (Version None)
Quarter: 2009Q3

REPORT INFORMATION
  Report Type: 
  Country: None (occurrence: None)
  Receive Date: 20090928
  Receipt Date: 20090928
  Transmission Date: 20100115
  Serious: Yes (Other)
  Sender: FDA-Public Use
  Company Number: None

PATIENT
  Sex: Female
  Weight: 54.4316 kg

DRUGS (2)
  1. RIBAVIRIN [Suspect]
     Indication: HEPATITIS C
     Dosage: 400 MG Q AM; 600 MG 400QAM; 600QPM PO
     Route: 048
     Dates: start: 20090919, end: 20090925
  2. PEGASYS [Suspect]
     Indication: HEPATITIS C
     Dosage: 180MCG ONCE PER WEEK SQ
     Route: 058
     Dates: start: 20090919, end: 20090925

REACTIONS (5)
  - CHROMATURIA [None]
  - COUGH [None]
  - DIZZINESS [None]
  - DYSURIA [None]
  - URINARY TRACT INFECTION [None]
